FAERS Safety Report 19864580 (Version 1)
Quarter: 2021Q3

REPORT INFORMATION
  Report Type: Spontaneous
  Country: US (occurrence: US)
  Receive Date: 20210922
  Receipt Date: 20210922
  Transmission Date: 20211014
  Serious: No
  Sender: FDA-Public Use
  Company Number: US-ORGANON-O2109USA001342

PATIENT
  Age: 16 Year
  Sex: Female
  Weight: 59.73 kg

DRUGS (1)
  1. NEXPLANON [Suspect]
     Active Substance: ETONOGESTREL
     Dosage: 68 MILLIGRAMS, EVERY 3 YEARS (1 ROD), LEFT ARM
     Route: 059
     Dates: start: 20210915

REACTIONS (4)
  - Complication associated with device [Recovered/Resolved]
  - No adverse event [Unknown]
  - Device placement issue [Not Recovered/Not Resolved]
  - Complication of device removal [Not Recovered/Not Resolved]

NARRATIVE: CASE EVENT DATE: 20210915
